FAERS Safety Report 13443035 (Version 1)
Quarter: 2017Q2

REPORT INFORMATION
  Report Type: Spontaneous
  Country: FR (occurrence: FR)
  Receive Date: 20170414
  Receipt Date: 20170414
  Transmission Date: 20170830
  Serious: Yes (Life-Threatening, Hospitalization)
  Sender: FDA-Public Use
  Company Number: FR-SA-2017SA064850

PATIENT
  Age: 64 Year
  Sex: Male
  Weight: 95 kg

DRUGS (7)
  1. DAFALGAN [Concomitant]
     Active Substance: ACETAMINOPHEN
     Route: 065
  2. VIREAD [Concomitant]
     Active Substance: TENOFOVIR DISOPROXIL FUMARATE
     Route: 065
  3. TAXOTERE [Suspect]
     Active Substance: DOCETAXEL
     Indication: PROSTATE CANCER
     Route: 042
     Dates: start: 201701, end: 201701
  4. TAXOTERE [Suspect]
     Active Substance: DOCETAXEL
     Indication: PROSTATE CANCER
     Route: 042
     Dates: start: 20170320, end: 20170320
  5. FLUDEX [Concomitant]
     Active Substance: INDAPAMIDE
     Route: 065
  6. TRAMADOL BASE [Concomitant]
     Active Substance: TRAMADOL
     Route: 065
  7. FIRMAGON [Suspect]
     Active Substance: DEGARELIX ACETATE
     Indication: PROSTATE CANCER
     Dosage: FORM:POWDER AND SOLVENT FOR INJECTION SOLUTION
     Route: 058
     Dates: start: 201611

REACTIONS (1)
  - Diabetic ketoacidosis [Recovered/Resolved]

NARRATIVE: CASE EVENT DATE: 20170322
